FAERS Safety Report 9690279 (Version 2)
Quarter: 2014Q1

REPORT INFORMATION
  Report Type: Spontaneous
  Country: US (occurrence: US)
  Receive Date: 20131115
  Receipt Date: 20140117
  Transmission Date: 20141002
  Serious: Yes (Other)
  Sender: FDA-Public Use
  Company Number: US-009507513-1311USA000691

PATIENT
  Age: 84 Year
  Sex: Male

DRUGS (12)
  1. FUROSEMIDE [Suspect]
     Indication: CARDIAC FAILURE CONGESTIVE
     Dosage: 40 MG, QD
     Route: 048
  2. FUROSEMIDE [Suspect]
     Dosage: 80 MG, QD
     Route: 048
  3. FUROSEMIDE [Suspect]
     Dosage: 160 MG, QD
     Route: 048
  4. FUROSEMIDE [Suspect]
     Dosage: 80 MG, QD
     Route: 048
  5. FUROSEMIDE [Suspect]
     Indication: CARDIAC FAILURE
     Route: 042
  6. SIMVASTATIN TABLETS, USP [Concomitant]
  7. POTASSIUM CHLORIDE - USP [Concomitant]
  8. CHLORTHALIDONE [Concomitant]
  9. RAMIPRIL [Concomitant]
  10. VITAMINS (UNSPECIFIED) [Concomitant]
  11. LEVOFLOXACIN [Concomitant]
  12. VANCOMYCIN [Concomitant]

REACTIONS (2)
  - Immune thrombocytopenic purpura [Recovered/Resolved]
  - Platelet transfusion [Recovered/Resolved]
